FAERS Safety Report 10193380 (Version 1)
Quarter: 2014Q2

REPORT INFORMATION
  Report Type: Spontaneous
  Country: US (occurrence: US)
  Receive Date: 20140524
  Receipt Date: 20140524
  Transmission Date: 20141212
  Serious: No
  Sender: FDA-Public Use
  Company Number: US-SA-2013SA122678

PATIENT
  Age: 48 Year
  Sex: Female

DRUGS (5)
  1. LANTUS [Suspect]
     Dosage: DOSE:10 UNIT(S)
     Route: 051
  2. HUMALIN [Concomitant]
  3. HUMALOG [Concomitant]
  4. CORTICOSTEROID NOS [Concomitant]
  5. ANTIHISTAMINES [Concomitant]

REACTIONS (3)
  - Urticaria [Not Recovered/Not Resolved]
  - Palpitations [Not Recovered/Not Resolved]
  - Swelling [Not Recovered/Not Resolved]
